FAERS Safety Report 5472710-9 (Version None)
Quarter: 2007Q4

REPORT INFORMATION
  Report Type: 
  Country: None (occurrence: None)
  Receive Date: 20071001
  Receipt Date: 20061027
  Transmission Date: 20080405
  Serious: No
  Sender: FDA-Public Use
  Company Number: US-ASTRAZENECA-2006UW20702

PATIENT
  Age: 69 Year
  Sex: Female
  Weight: 48.5 kg

DRUGS (1)
  1. ARIMIDEX [Suspect]
     Indication: BREAST CANCER
     Route: 048
     Dates: start: 20041201, end: 20051101

REACTIONS (3)
  - HEMIPARESIS [None]
  - IMPAIRED HEALING [None]
  - OSTEOPOROSIS [None]
